FAERS Safety Report 11840154 (Version 1)
Quarter: 2015Q4

REPORT INFORMATION
  Report Type: Spontaneous
  Country: VE (occurrence: VE)
  Receive Date: 20151216
  Receipt Date: 20151216
  Transmission Date: 20160305
  Serious: Yes (Other)
  Sender: FDA-Public Use
  Company Number: VE-ELI_LILLY_AND_COMPANY-VE201512003733

PATIENT
  Sex: Female

DRUGS (1)
  1. CYMBALTA [Suspect]
     Active Substance: DULOXETINE HYDROCHLORIDE
     Indication: PAIN
     Dosage: 30 MG, QD
     Route: 048
     Dates: start: 20151208

REACTIONS (6)
  - Somnolence [Unknown]
  - Tremor [Unknown]
  - Seizure [Unknown]
  - Dry mouth [Unknown]
  - Loss of consciousness [Unknown]
  - Tachycardia [Unknown]
